FAERS Safety Report 17835394 (Version 1)
Quarter: 2020Q2

REPORT INFORMATION
  Report Type: Spontaneous
  Country: US (occurrence: US)
  Receive Date: 20200528
  Receipt Date: 20200528
  Transmission Date: 20200714
  Serious: No
  Sender: FDA-Public Use
  Company Number: US-TEVA-2020-US-1241645

PATIENT
  Sex: Female

DRUGS (1)
  1. COPAXONE [Suspect]
     Active Substance: GLATIRAMER ACETATE
     Dosage: FORM OF ADMINISTRATION: UNKNOWN
     Route: 065
     Dates: start: 1999

REACTIONS (5)
  - Dyspnoea [Unknown]
  - Feeling cold [Unknown]
  - Tremor [Unknown]
  - Flushing [Unknown]
  - Fatigue [Unknown]
